FAERS Safety Report 10368167 (Version 1)
Quarter: 2014Q1

REPORT INFORMATION
  Report Type: Spontaneous
  Country: US (occurrence: None)
  Receive Date: 20140306
  Receipt Date: 20140306
  Transmission Date: 20141002
  Serious: Yes (Hospitalization)
  Sender: FDA-Public Use
  Company Number: 163-21880-13022744

PATIENT
  Age: 74 Year
  Sex: Male

DRUGS (9)
  1. REVLIMID (LENALIDOMIDE) (10 MILLIGRAM, CAPSULES) [Suspect]
     Indication: ACUTE LEUKAEMIA
     Dosage: 10 MG, 21 IN 21 D, PO
     Route: 048
     Dates: start: 20121226
  2. REVLIMID (LENALIDOMIDE) (10 MILLIGRAM, CAPSULES) [Suspect]
     Indication: LYMPHOMA
     Dosage: 10 MG, 21 IN 21 D, PO
     Route: 048
     Dates: start: 20121226
  3. CALTRATE + VITAMIN D (LEKOVIT CA) [Concomitant]
  4. FIBER (POLYCARBOPHIL CALCIUM) [Concomitant]
  5. IRON (IRON) [Concomitant]
  6. OMEGA-3 (OMEGA-3 TRIGLUCERIDES) [Concomitant]
  7. VITAMIN E (TOCOPHEROL) [Suspect]
  8. VITAMIN C (ASCORBIC ACID) [Concomitant]
  9. MULTIVITAMINS (MULTIVITAMINS) [Concomitant]

REACTIONS (2)
  - Thrombosis [None]
  - Pulmonary embolism [None]
